FAERS Safety Report 9780654 (Version 2)
Quarter: 2014Q1

REPORT INFORMATION
  Report Type: Report from Study
  Country: DE (occurrence: DE)
  Receive Date: 20131224
  Receipt Date: 20140227
  Transmission Date: 20141002
  Serious: Yes (Death, Hospitalization)
  Sender: FDA-Public Use
  Company Number: DE-JNJFOC-20131214514

PATIENT
  Age: 46 Year
  Sex: Female
  Weight: 88 kg

DRUGS (48)
  1. XARELTO [Suspect]
     Indication: CEREBROVASCULAR ACCIDENT PROPHYLAXIS
     Route: 048
     Dates: start: 20130628
  2. XARELTO [Suspect]
     Indication: THROMBOSIS PROPHYLAXIS
     Route: 048
     Dates: start: 20130628
  3. PARACETAMOL [Concomitant]
     Route: 065
     Dates: start: 20130629, end: 20130630
  4. PARACETAMOL [Concomitant]
     Route: 065
     Dates: start: 20130701, end: 20130701
  5. PARACETAMOL [Concomitant]
     Route: 065
     Dates: start: 20130628, end: 20130628
  6. L-THYROXIN [Concomitant]
     Route: 065
     Dates: start: 20130716, end: 20131020
  7. L-THYROXIN [Concomitant]
     Route: 065
     Dates: start: 20130620, end: 20130715
  8. MOVICOL [Concomitant]
     Route: 065
     Dates: start: 20130622, end: 20130809
  9. DIGIMERCK [Concomitant]
     Route: 065
     Dates: start: 20130628, end: 201310
  10. AMIODARONE [Concomitant]
     Route: 065
     Dates: start: 20130620, end: 20131021
  11. ADUMBRAN [Concomitant]
     Route: 065
     Dates: start: 20130628, end: 20130704
  12. ACTONEL [Concomitant]
     Route: 065
     Dates: start: 20130709, end: 20130709
  13. ACTONEL [Concomitant]
     Route: 065
     Dates: start: 20130716, end: 20130716
  14. ACTONEL [Concomitant]
     Route: 065
     Dates: start: 20130723, end: 20130723
  15. ACTONEL [Concomitant]
     Route: 065
     Dates: start: 20130730, end: 20130730
  16. ACTONEL [Concomitant]
     Route: 065
     Dates: start: 20130806, end: 201310
  17. DIAZEPAM [Concomitant]
     Route: 065
     Dates: start: 20130805, end: 20130807
  18. BIKALM [Concomitant]
     Route: 065
     Dates: start: 20130709, end: 20130729
  19. VANCOMYCIN [Concomitant]
     Route: 065
     Dates: start: 20130803, end: 20130803
  20. VANCOMYCIN [Concomitant]
     Route: 065
     Dates: start: 20130730, end: 20130731
  21. VANCOMYCIN [Concomitant]
     Route: 065
     Dates: start: 20130829, end: 20130829
  22. VANCOMYCIN [Concomitant]
     Route: 065
     Dates: start: 20130729, end: 20130729
  23. VANCOMYCIN [Concomitant]
     Route: 065
     Dates: start: 20130802, end: 20130802
  24. VANCOMYCIN [Concomitant]
     Route: 065
     Dates: start: 20130703, end: 20130703
  25. VANCOMYCIN [Concomitant]
     Route: 065
     Dates: start: 20130712, end: 20130714
  26. VANCOMYCIN [Concomitant]
     Route: 065
     Dates: start: 20130715, end: 20130715
  27. VANCOMYCIN [Concomitant]
     Route: 065
     Dates: start: 20130723, end: 20130723
  28. VANCOMYCIN [Concomitant]
     Route: 065
     Dates: start: 20130801, end: 20130801
  29. VANCOMYCIN [Concomitant]
     Route: 065
     Dates: start: 20130716, end: 20130716
  30. KALINOR (POTASSIUM BICARBONATE, POTASSIUM CITRATE) [Concomitant]
     Route: 065
     Dates: start: 20130702, end: 20131020
  31. TAVEGIL [Concomitant]
     Route: 065
     Dates: start: 20130904, end: 20131020
  32. TAVEGIL [Concomitant]
     Route: 065
     Dates: start: 20130718, end: 20130719
  33. ZIRTEC [Concomitant]
     Route: 065
     Dates: start: 20130728, end: 20131021
  34. OXYGESIC [Concomitant]
     Route: 065
     Dates: start: 20130803, end: 20130809
  35. BENURON [Concomitant]
     Route: 065
     Dates: start: 20130807, end: 20130809
  36. BENURON [Concomitant]
     Route: 065
     Dates: start: 20130730, end: 20130806
  37. BENURON [Concomitant]
     Route: 065
     Dates: start: 20130706, end: 20130729
  38. NOVALGIN [Concomitant]
     Route: 065
     Dates: start: 20130703, end: 20130703
  39. NATRIUMHYDROGENCARBONAT [Concomitant]
     Route: 065
     Dates: start: 20131021, end: 20131021
  40. DORMICUM [Concomitant]
     Route: 065
     Dates: start: 20131021, end: 20131021
  41. CALCIUM GLUCONAT [Concomitant]
     Route: 065
     Dates: start: 20131021, end: 20131021
  42. GLUCOSE [Concomitant]
     Route: 065
     Dates: start: 20131021, end: 20131021
  43. AKRINOR [Concomitant]
     Route: 065
     Dates: start: 20131021, end: 20131021
  44. ARTERENOL [Concomitant]
     Route: 065
     Dates: start: 20131021, end: 20131021
  45. DOBUTREX [Concomitant]
     Route: 065
     Dates: start: 20131021, end: 20131021
  46. LASIX [Concomitant]
     Route: 065
     Dates: start: 20131020, end: 20131020
  47. TOREM [Concomitant]
     Route: 065
     Dates: start: 20130628, end: 20131020
  48. PANTOPRAZOLE [Concomitant]
     Route: 065
     Dates: start: 20130620, end: 20131020

REACTIONS (4)
  - International normalised ratio increased [Fatal]
  - Cardiomyopathy [Fatal]
  - Pruritus [Not Recovered/Not Resolved]
  - Blood creatinine increased [Not Recovered/Not Resolved]
